FAERS Safety Report 4976875-4 (Version None)
Quarter: 2006Q1

REPORT INFORMATION
  Report Type: 
  Country: None (occurrence: None)
  Receive Date: 20060316
  Receipt Date: 20060302
  Transmission Date: 20060701
  Serious: Yes (Other)
  Sender: FDA-Public Use
  Company Number: 2013342-2006-00001

PATIENT
  Age: 49 Year
  Sex: Male

DRUGS (1)
  1. LEUKOTRAP RC SYSTEM, DOUBLE CP2D/AS3, 500ML, YSS [Suspect]

REACTIONS (7)
  - CIRCULATORY COLLAPSE [None]
  - HAEMORRHAGE [None]
  - HYPERTENSION [None]
  - POOR QUALITY DRUG ADMINISTERED [None]
  - SEPSIS [None]
  - TACHYCARDIA [None]
  - TRANSFUSION REACTION [None]
